FAERS Safety Report 5571683-8 (Version None)
Quarter: 2007Q4

REPORT INFORMATION
  Report Type: 
  Country: None (occurrence: None)
  Receive Date: 20071221
  Receipt Date: 20071217
  Transmission Date: 20080405
  Serious: Yes (Death)
  Sender: FDA-Public Use
  Company Number: A0539357A

PATIENT
  Age: 49 Year
  Sex: Male
  Weight: 88.6 kg

DRUGS (11)
  1. PAXIL [Suspect]
     Indication: ANXIETY
     Dosage: 20MG AT NIGHT
     Route: 048
     Dates: start: 19971201, end: 20020101
  2. PAXIL CR [Suspect]
     Indication: ANXIETY
     Route: 048
     Dates: start: 20020101, end: 20030204
  3. PRILOSEC [Concomitant]
     Dosage: 20MG IN THE MORNING
  4. NORVASC [Concomitant]
     Dosage: 20MG IN THE MORNING
  5. TYLENOL [Concomitant]
  6. REGLAN [Concomitant]
  7. AMBIEN [Concomitant]
  8. ZANTAC [Concomitant]
  9. NEXIUM [Concomitant]
  10. PREVACID [Concomitant]
  11. BENTYL [Concomitant]

REACTIONS (19)
  - ABNORMAL BEHAVIOUR [None]
  - AGITATION [None]
  - ANXIETY [None]
  - COMPLETED SUICIDE [None]
  - DEPRESSION [None]
  - FATIGUE [None]
  - FEELING ABNORMAL [None]
  - FORMICATION [None]
  - HALLUCINATION [None]
  - HOT FLUSH [None]
  - INSOMNIA [None]
  - MAJOR DEPRESSION [None]
  - MEMORY IMPAIRMENT [None]
  - NAUSEA [None]
  - PAIN [None]
  - PARANOIA [None]
  - POOR QUALITY SLEEP [None]
  - SEXUAL DYSFUNCTION [None]
  - SOCIAL AVOIDANT BEHAVIOUR [None]
